FAERS Safety Report 6634553-X (Version None)
Quarter: 2010Q1

REPORT INFORMATION
  Report Type: 
  Country: None (occurrence: None)
  Receive Date: 20100315
  Receipt Date: 20100305
  Transmission Date: 20100710
  Serious: Yes (Death, Life-Threatening, Hospitalization)
  Sender: FDA-Public Use
  Company Number: TW-ELI_LILLY_AND_COMPANY-TW201003001483

PATIENT
  Age: 56 Year
  Sex: Male
  Weight: 71 kg

DRUGS (8)
  1. PRASUGREL HYDROCHLORIDE [Suspect]
     Indication: ACUTE CORONARY SYNDROME
     Route: 048
     Dates: start: 20100225, end: 20100304
  2. ASPIRIN [Concomitant]
     Indication: ACUTE MYOCARDIAL INFARCTION
     Dates: start: 20100226
  3. ATORVASTATIN CALCIUM [Concomitant]
     Indication: ACUTE MYOCARDIAL INFARCTION
     Dates: start: 20100226
  4. CARVEDILOL [Concomitant]
     Indication: ACUTE MYOCARDIAL INFARCTION
     Dates: start: 20100226
  5. TOPAAL [Concomitant]
     Indication: PROPHYLAXIS
     Dates: start: 20100226
  6. FUROSEMIDE [Concomitant]
     Indication: ACUTE MYOCARDIAL INFARCTION
     Dates: start: 20100302
  7. ISOSORBIDE DINITRATE [Concomitant]
     Indication: ACUTE MYOCARDIAL INFARCTION
     Dates: start: 20100303
  8. SULTAMICILLIN [Concomitant]
     Indication: URINARY TRACT INFECTION
     Dates: start: 20100302

REACTIONS (1)
  - CARDIAC TAMPONADE [None]
